FAERS Safety Report 4929952-8 (Version None)
Quarter: 2006Q1

REPORT INFORMATION
  Report Type: 
  Country: None (occurrence: None)
  Receive Date: 20060127
  Receipt Date: 20051110
  Transmission Date: 20060701
  Serious: Yes (Other)
  Sender: FDA-Public Use
  Company Number: 2005154658

PATIENT
  Age: 38 Year
  Sex: Female
  Weight: 49.8957 kg

DRUGS (5)
  1. LYRICA [Suspect]
     Indication: NEUROPATHY
     Dosage: 100 MG (50 MG, 2 IN 1 D)
     Dates: start: 20051001
  2. OXYCODONE [Concomitant]
  3. KLONOPIN [Concomitant]
  4. TERIPARATIDE [Concomitant]
  5. DURAGESIC-100 [Concomitant]

REACTIONS (1)
  - MUSCLE SPASMS [None]
